FAERS Safety Report 22299372 (Version 1)
Quarter: 2023Q2

REPORT INFORMATION
  Report Type: Spontaneous
  Country: US (occurrence: None)
  Receive Date: 20230508
  Receipt Date: 20230508
  Transmission Date: 20230722
  Serious: Yes (Death)
  Sender: FDA-Public Use
  Company Number: None

PATIENT
  Age: 45 Year
  Sex: Male
  Weight: 78.9 kg

DRUGS (1)
  1. BELATACEPT [Suspect]
     Active Substance: BELATACEPT
     Indication: Renal transplant
     Dosage: OTHER FREQUENCY : EVERY 28 DAYS;?
     Route: 042
     Dates: start: 20230313

REACTIONS (11)
  - Hypoxia [None]
  - Hypotension [None]
  - Superior vena cava syndrome [None]
  - Acute hepatic failure [None]
  - International normalised ratio increased [None]
  - Haemolysis [None]
  - Multiple organ dysfunction syndrome [None]
  - Blood potassium increased [None]
  - Blood lactic acid increased [None]
  - Haemophagocytic lymphohistiocytosis [None]
  - Acute respiratory failure [None]

NARRATIVE: CASE EVENT DATE: 20230506
